FAERS Safety Report 15527099 (Version 8)
Quarter: 2020Q3

REPORT INFORMATION
  Report Type: Spontaneous
  Country: PT (occurrence: PT)
  Receive Date: 20181020
  Receipt Date: 20200717
  Transmission Date: 20201102
  Serious: Yes (Hospitalization, Other)
  Sender: FDA-Public Use
  Company Number: PT-AUROBINDO-AUR-APL-2018-021990

PATIENT
  Age: 68 Year
  Sex: Male

DRUGS (18)
  1. ARTICHOKE. [Interacting]
     Active Substance: ARTICHOKE
     Indication: BLOOD URIC ACID INCREASED
  2. GLICLAZIDE [Interacting]
     Active Substance: GLICLAZIDE
     Indication: PRODUCT USED FOR UNKNOWN INDICATION
     Dosage: 30 MILLIGRAM, TWO TIMES A DAY (30 MG, BID)
     Route: 065
  3. AMLODIPINE [Suspect]
     Active Substance: AMLODIPINE BESYLATE
     Indication: PRODUCT USED FOR UNKNOWN INDICATION
     Dosage: 5 MILLIGRAM, ONCE A DAY
     Route: 065
  4. ENALAPRIL+HYDROCHLOROTHIAZIDE 20/12.5MG [Interacting]
     Active Substance: ENALAPRIL\HYDROCHLOROTHIAZIDE
     Dosage: 1 DOSAGE FORM, DAILY
     Route: 065
  5. METFORMIN [Interacting]
     Active Substance: METFORMIN HYDROCHLORIDE
     Indication: PRODUCT USED FOR UNKNOWN INDICATION
     Dosage: 3000 MILLIGRAM, ONCE A DAY
     Route: 065
  6. ASPIRIN. [Interacting]
     Active Substance: ASPIRIN
     Indication: PRODUCT USED FOR UNKNOWN INDICATION
     Dosage: 150 MILLIGRAM, ONCE A DAY
     Route: 065
  7. IBUPROFEN 400 MG FILM COATED TABLETS [Interacting]
     Active Substance: IBUPROFEN SODIUM
     Indication: PRODUCT USED FOR UNKNOWN INDICATION
     Dosage: 2 DOSAGE FORM, ONCE A DAY
     Route: 048
  8. ENALAPRIL+HYDROCHLOROTHIAZIDE 20/12.5MG [Interacting]
     Active Substance: ENALAPRIL\HYDROCHLOROTHIAZIDE
     Indication: PRODUCT USED FOR UNKNOWN INDICATION
     Dosage: 20 MILLIGRAM, ONCE A DAY
     Route: 065
  9. ENALAPRIL+HYDROCHLOROTHIAZIDE 20/12.5MG [Interacting]
     Active Substance: ENALAPRIL\HYDROCHLOROTHIAZIDE
     Dosage: 20 MG/12.5 MG, ONCE A DAY
     Route: 065
  10. IBUPROFEN FILM?COATED TABLET [Interacting]
     Active Substance: IBUPROFEN
     Indication: MYALGIA
     Dosage: UNK
     Route: 065
     Dates: start: 201703
  11. COLCHICINE. [Interacting]
     Active Substance: COLCHICINE
     Dosage: 2 MILLIGRAM, DAILY, 0.5 MG, QID
     Route: 065
  12. IBUPROFEN FILM?COATED TABLET [Interacting]
     Active Substance: IBUPROFEN
     Dosage: 2 DOSAGE FORM, ONCE A DAY
     Route: 065
  13. INDAPAMIDE COATED TABLET [Interacting]
     Active Substance: INDAPAMIDE
     Indication: PRODUCT USED FOR UNKNOWN INDICATION
     Dosage: 2.5 MILLIGRAM, ONCE A DAY
     Route: 065
  14. COLCHICINE. [Interacting]
     Active Substance: COLCHICINE
     Dosage: 4 DOSAGE FORM
     Route: 065
  15. CLONIXIN [Interacting]
     Active Substance: CLONIXIN
     Indication: GOUT
     Dosage: 300 MILLIGRAM
     Route: 065
  16. DIAZEPAM. [Interacting]
     Active Substance: DIAZEPAM
     Indication: PRODUCT USED FOR UNKNOWN INDICATION
     Dosage: 5 MILLIGRAM, ONCE A DAY
     Route: 065
  17. ARTICHOKE. [Interacting]
     Active Substance: ARTICHOKE
     Indication: GOUT
     Dosage: 1.5 LITER, ONCE A DAY
     Route: 048
  18. COLCHICINE. [Interacting]
     Active Substance: COLCHICINE
     Indication: GOUT
     Dosage: 0.5 MILLIGRAM
     Route: 048

REACTIONS (16)
  - Hepatotoxicity [Recovered/Resolved]
  - Toxicity to various agents [Recovered/Resolved]
  - Herbal interaction [Recovered/Resolved]
  - Haematotoxicity [Recovered/Resolved]
  - Myalgia [Recovered/Resolved]
  - Leukocytosis [Recovered/Resolved]
  - Thrombocytosis [Recovered/Resolved]
  - Drug interaction [Recovered/Resolved]
  - Drug-induced liver injury [Recovered/Resolved]
  - Hyperglycaemia [Recovered/Resolved]
  - Gout [Unknown]
  - Liver injury [Recovered/Resolved]
  - Therapeutic product effect decreased [Recovered/Resolved]
  - Neutrophilia [Recovered/Resolved]
  - Diabetes mellitus inadequate control [Recovered/Resolved]
  - Cholestasis [Recovered/Resolved]

NARRATIVE: CASE EVENT DATE: 2017
